FAERS Safety Report 7537884-4 (Version None)
Quarter: 2011Q2

REPORT INFORMATION
  Report Type: 
  Country: None (occurrence: None)
  Receive Date: 20110609
  Receipt Date: 20110606
  Transmission Date: 20111010
  Serious: Yes (Other)
  Sender: FDA-Public Use
  Company Number: PHHY2011GB48990

PATIENT
  Age: 89 Year
  Sex: Female
  Weight: 53 kg

DRUGS (10)
  1. ALENDRONATE SODIUM [Suspect]
     Indication: OSTEOPOROSIS
     Dosage: 10 MG, UNK
     Route: 048
  2. PRAVASTATIN SODIUM [Concomitant]
     Dosage: UNK
  3. FERROUS FUMARATE [Concomitant]
     Dosage: UNK
  4. OMEPRAZOLE [Concomitant]
     Dosage: UNK
  5. LOSARTAN POTASSIUM [Concomitant]
     Dosage: UNK
  6. LEVEMIR [Concomitant]
     Dosage: UNK
  7. ACETAMINOPHEN [Concomitant]
     Dosage: UNK
  8. CITALOPRAM HYDROBROMIDE [Concomitant]
     Dosage: UNK
  9. DOCUSATE SODIUM [Concomitant]
     Dosage: UNK
  10. ADCAL-D3 [Concomitant]
     Dosage: UNK

REACTIONS (3)
  - OESOPHAGEAL ULCER [None]
  - MELAENA [None]
  - HYPOTENSION [None]
